FAERS Safety Report 8451300-X (Version None)
Quarter: 2012Q2

REPORT INFORMATION
  Report Type: 
  Country: None (occurrence: None)
  Receive Date: 20120620
  Receipt Date: 20120418
  Transmission Date: 20120825
  Serious: No
  Sender: FDA-Public Use
  Company Number: US-VERTEX PHARMACEUTICALS INC.-AE-2012-002403

PATIENT
  Sex: Female
  Weight: 78.996 kg

DRUGS (5)
  1. COPEGUS [Concomitant]
     Indication: HEPATITIS C
     Route: 048
     Dates: start: 20120207
  2. PEGASYS [Concomitant]
     Indication: HEPATITIS C
     Route: 058
     Dates: start: 20120207
  3. SERTRALINE HYDROCHLORIDE [Concomitant]
     Indication: DEPRESSION
     Route: 048
  4. INCIVEK [Suspect]
     Indication: HEPATITIS C
     Route: 048
     Dates: start: 20120207
  5. LORTAB [Concomitant]
     Indication: BACK PAIN
     Route: 048

REACTIONS (7)
  - DIARRHOEA [None]
  - ANORECTAL DISCOMFORT [None]
  - DRUG DOSE OMISSION [None]
  - FATIGUE [None]
  - ANAL PRURITUS [None]
  - RASH PAPULAR [None]
  - PRURITUS [None]
